FAERS Safety Report 12671301 (Version 1)
Quarter: 2016Q3

REPORT INFORMATION
  Report Type: Spontaneous
  Country: US (occurrence: US)
  Receive Date: 20160822
  Receipt Date: 20160822
  Transmission Date: 20161109
  Serious: No
  Sender: FDA-Public Use
  Company Number: US-TEVA-654370USA

PATIENT
  Sex: Female
  Weight: 56.69 kg

DRUGS (4)
  1. FEXOFENADINE [Suspect]
     Active Substance: FEXOFENADINE\FEXOFENADINE HYDROCHLORIDE
     Dosage: 1/2 TAB HS PRN  REGIMEN 2
     Route: 048
     Dates: start: 20160410
  2. FEXOFENADINE [Suspect]
     Active Substance: FEXOFENADINE\FEXOFENADINE HYDROCHLORIDE
     Indication: NASAL CONGESTION
     Dosage: 1/2 TAB HS PRN  REGIMEN 2
     Route: 048
     Dates: start: 201601, end: 201602
  3. LEVOTHYROXINE. [Concomitant]
     Active Substance: LEVOTHYROXINE
     Indication: HYPOTHYROIDISM
  4. FEXOFENADINE [Suspect]
     Active Substance: FEXOFENADINE\FEXOFENADINE HYDROCHLORIDE
     Indication: SNEEZING
     Dosage: HS PRN
     Route: 048
     Dates: start: 201601, end: 201601

REACTIONS (7)
  - Off label use [Unknown]
  - Wrong technique in product usage process [Unknown]
  - Underdose [Unknown]
  - Mucosal dryness [Unknown]
  - Insomnia [Unknown]
  - Expired product administered [Unknown]
  - Thirst [Unknown]
